FAERS Safety Report 18198781 (Version 3)
Quarter: 2021Q3

REPORT INFORMATION
  Report Type: Spontaneous
  Country: US (occurrence: US)
  Receive Date: 20200826
  Receipt Date: 20210721
  Transmission Date: 20211014
  Serious: Yes (Other)
  Sender: FDA-Public Use
  Company Number: US-SA-2020SA226829

PATIENT
  Age: 56 Year
  Sex: Female

DRUGS (1)
  1. PRALUENT [Suspect]
     Active Substance: ALIROCUMAB
     Indication: HYPERCHOLESTEROLAEMIA
     Dosage: 150 MG, QOW
     Route: 058
     Dates: start: 2019

REACTIONS (10)
  - Neuropathy peripheral [Unknown]
  - Musculoskeletal disorder [Unknown]
  - Pain in extremity [Unknown]
  - Injection site pain [Unknown]
  - Fall [Unknown]
  - Vision blurred [Unknown]
  - Asthenia [Unknown]
  - Eye laser surgery [Unknown]
  - Intentional dose omission [Unknown]
  - Arthropathy [Unknown]

NARRATIVE: CASE EVENT DATE: 20200819
